FAERS Safety Report 4375241-2 (Version None)
Quarter: 2004Q2

REPORT INFORMATION
  Report Type: 
  Country: None (occurrence: None)
  Receive Date: 20040610
  Receipt Date: 20040407
  Transmission Date: 20050107
  Serious: Yes (Death)
  Sender: FDA-Public Use
  Company Number: 200411241JP

PATIENT
  Age: 73 Year
  Sex: Male

DRUGS (3)
  1. TAXOTERE [Suspect]
     Indication: NON-SMALL CELL LUNG CANCER RECURRENT
     Route: 041
     Dates: start: 20030303, end: 20030324
  2. GEMZAR [Suspect]
     Indication: NON-SMALL CELL LUNG CANCER RECURRENT
     Route: 041
     Dates: start: 20030224, end: 20030324
  3. NEUPOGEN [Concomitant]
     Dates: start: 20030317

REACTIONS (34)
  - ALOPECIA [None]
  - ALVEOLITIS [None]
  - ANOREXIA [None]
  - AORTIC ATHEROSCLEROSIS [None]
  - BACTERIA SPUTUM IDENTIFIED [None]
  - BLOOD LACTATE DEHYDROGENASE INCREASED [None]
  - BLOOD PH INCREASED [None]
  - BRONCHOPNEUMONIA [None]
  - CONSTIPATION [None]
  - DEHYDRATION [None]
  - DISEASE PROGRESSION [None]
  - DRUG EFFECT DECREASED [None]
  - DYSPNOEA EXERTIONAL [None]
  - FATIGUE [None]
  - GASTRIC CANCER [None]
  - HAEMOGLOBIN DECREASED [None]
  - HYPERSENSITIVITY [None]
  - INFARCTION [None]
  - METASTASES TO ADRENALS [None]
  - METASTASES TO DIAPHRAGM [None]
  - METASTASES TO LUNG [None]
  - METASTASES TO THORAX [None]
  - NEUTROPENIC INFECTION [None]
  - PLATELET COUNT DECREASED [None]
  - PNEUMONIA [None]
  - PNEUMONIA BACTERIAL [None]
  - PNEUMONIA CYTOMEGALOVIRAL [None]
  - PNEUMONIA PRIMARY ATYPICAL [None]
  - PNEUMONITIS [None]
  - PYREXIA [None]
  - RED BLOOD CELL COUNT DECREASED [None]
  - RESPIRATORY FAILURE [None]
  - STAPHYLOCOCCAL INFECTION [None]
  - WHITE BLOOD CELL COUNT DECREASED [None]
